FAERS Safety Report 5695703-5 (Version None)
Quarter: 2008Q2

REPORT INFORMATION
  Report Type: 
  Country: None (occurrence: None)
  Receive Date: 20080407
  Receipt Date: 20080327
  Transmission Date: 20081010
  Serious: Yes (Death, Hospitalization)
  Sender: FDA-Public Use
  Company Number: CH-ELI_LILLY_AND_COMPANY-CH200803006336

PATIENT
  Age: 20 Year
  Sex: Male

DRUGS (15)
  1. ZYPREXA [Suspect]
     Indication: ANXIETY DISORDER
     Dosage: 20 MG, DAILY (1/D)
     Route: 048
     Dates: start: 20070130
  2. METHADONE HCL [Interacting]
     Indication: MENTAL DISORDER
     Dosage: 80 MG, DAILY (1/D)
     Route: 048
     Dates: end: 20070101
  3. METHADONE HCL [Interacting]
     Dosage: 15 MG, DAILY (1/D)
     Route: 048
     Dates: start: 20070302, end: 20070302
  4. METHADONE HCL [Interacting]
     Dosage: 30 MG, DAILY (1/D)
     Route: 048
     Dates: start: 20070303
  5. REMERON [Interacting]
     Indication: ANXIETY DISORDER
     Dosage: 15 MG, EACH EVENING
     Route: 048
     Dates: start: 20070227, end: 20070228
  6. REMERON [Interacting]
     Dosage: 30 MG, EACH EVENING
     Route: 048
     Dates: start: 20070301
  7. TEMESTA [Interacting]
     Indication: ANXIETY DISORDER
     Dosage: 2 MG, DAILY (1/D)
     Route: 048
     Dates: start: 20070227, end: 20070228
  8. TEMESTA [Interacting]
     Dosage: 3.5 MG, DAILY (1/D)
     Route: 048
     Dates: start: 20070301, end: 20070301
  9. TEMESTA [Interacting]
     Dosage: 5 MG, DAILY (1/D)
     Route: 048
     Dates: start: 20070302
  10. TEMESTA [Interacting]
     Dosage: 2 MG, AS NEEDED
     Route: 048
     Dates: start: 20070302
  11. NOZINAN [Interacting]
     Indication: ANXIETY DISORDER
     Dosage: 25 MG, EACH EVENING
     Route: 048
     Dates: start: 20070130
  12. NICOTINELL [Concomitant]
     Dosage: 21 MG, DAILY (1/D)
     Dates: end: 20070226
  13. NICOTINELL [Concomitant]
     Dosage: 14 MG, DAILY (1/D)
     Dates: start: 20070227
  14. NICOTINE [Concomitant]
     Dosage: UNK, DAILY (1/D)
     Route: 055
     Dates: start: 20070303, end: 20070303
  15. HEROIN [Concomitant]
     Route: 055
     Dates: end: 20070302

REACTIONS (8)
  - ABNORMAL BEHAVIOUR [None]
  - CARDIAC ARREST [None]
  - DEPRESSED LEVEL OF CONSCIOUSNESS [None]
  - DRUG INTERACTION [None]
  - DRUG WITHDRAWAL SYNDROME [None]
  - HEADACHE [None]
  - MENTAL DISORDER [None]
  - SUICIDAL IDEATION [None]
